FAERS Safety Report 5176331-7 (Version None)
Quarter: 2006Q4

REPORT INFORMATION
  Report Type: 
  Country: None (occurrence: None)
  Receive Date: 20061215
  Receipt Date: 20061208
  Transmission Date: 20070319
  Serious: Yes (Other)
  Sender: FDA-Public Use
  Company Number: 2006UW27614

PATIENT
  Age: 74 Year
  Sex: Female
  Weight: 44 kg

DRUGS (3)
  1. TAMOXIFEN CITRATE [Suspect]
     Indication: BREAST CANCER
     Route: 048
     Dates: start: 20000101, end: 20050101
  2. ATENOLOL [Concomitant]
     Indication: HYPERTENSION
     Dosage: }3 YEARS
     Route: 048
  3. TEBONIN [Concomitant]
     Indication: PERIPHERAL VASCULAR DISORDER
     Dosage: }3 YEARS
     Route: 048

REACTIONS (1)
  - HYPOACUSIS [None]
